FAERS Safety Report 5480972-7 (Version None)
Quarter: 2007Q4

REPORT INFORMATION
  Report Type: 
  Country: None (occurrence: None)
  Receive Date: 20071009
  Receipt Date: 20070930
  Transmission Date: 20080405
  Serious: Yes (Hospitalization)
  Sender: FDA-Public Use
  Company Number: US-AMGEN-QUU245664

PATIENT
  Sex: Female

DRUGS (3)
  1. ENBREL [Suspect]
     Indication: PSORIATIC ARTHROPATHY
     Route: 058
     Dates: start: 20070628, end: 20070922
  2. ENBREL [Suspect]
     Indication: PUSTULAR PSORIASIS
  3. METHOTREXATE [Concomitant]
     Route: 048
     Dates: start: 20070922

REACTIONS (9)
  - CHEST PAIN [None]
  - DYSPNOEA [None]
  - HYPERTENSION [None]
  - OEDEMA PERIPHERAL [None]
  - PETECHIAE [None]
  - PRURITUS [None]
  - PUSTULAR PSORIASIS [None]
  - TACHYCARDIA [None]
  - VASCULITIS [None]
